FAERS Safety Report 5483518-2 (Version None)
Quarter: 2007Q4

REPORT INFORMATION
  Report Type: 
  Country: None (occurrence: None)
  Receive Date: 20071012
  Receipt Date: 20071008
  Transmission Date: 20080405
  Serious: Yes (Hospitalization)
  Sender: FDA-Public Use
  Company Number: US-ALLERGAN-0711006US

PATIENT
  Sex: Female

DRUGS (5)
  1. BOTOX [Suspect]
     Indication: OESOPHAGEAL ACHALASIA
     Dosage: 100 UNITS, SINGLE
     Route: 030
  2. PETHIDIN [Concomitant]
     Dosage: 50 MG, SINGLE
  3. MIDAZOLAM HCL [Concomitant]
     Dosage: 3.5 MG, SINGLE
  4. GLYBURIDE [Concomitant]
     Indication: DIABETES MELLITUS
  5. INSULIN [Concomitant]
     Indication: DIABETES MELLITUS

REACTIONS (6)
  - CHEST PAIN [None]
  - MEDIASTINITIS [None]
  - OESOPHAGEAL ULCER [None]
  - PHARYNGOLARYNGEAL PAIN [None]
  - PYREXIA [None]
  - URINARY TRACT INFECTION [None]
